FAERS Safety Report 7730394-0 (Version None)
Quarter: 2011Q3

REPORT INFORMATION
  Report Type: 
  Country: None (occurrence: None)
  Receive Date: 20110906
  Receipt Date: 20110901
  Transmission Date: 20111222
  Serious: Yes (Other)
  Sender: FDA-Public Use
  Company Number: GB-TEVA-299144ISR

PATIENT
  Age: 62 Year
  Sex: Female
  Weight: 57.8 kg

DRUGS (1)
  1. MELOXICAM [Suspect]
     Indication: ARTHRITIS
     Dosage: 3.75 MILLIGRAM;
     Route: 048
     Dates: start: 20100701, end: 20110101

REACTIONS (6)
  - TINNITUS [None]
  - AMNESIA [None]
  - BALANCE DISORDER [None]
  - CONFUSIONAL STATE [None]
  - PERSONALITY CHANGE [None]
  - DISTURBANCE IN ATTENTION [None]
